FAERS Safety Report 4929232-0 (Version None)
Quarter: 2006Q1

REPORT INFORMATION
  Report Type: 
  Country: None (occurrence: None)
  Receive Date: 20060301
  Receipt Date: 20060202
  Transmission Date: 20060701
  Serious: Yes (Hospitalization)
  Sender: FDA-Public Use
  Company Number: 2006UW01899

PATIENT
  Age: 3 Year
  Sex: Male
  Weight: 12.7 kg

DRUGS (2)
  1. PULMICORT RESPULES [Suspect]
     Indication: CHEST DISCOMFORT
     Dosage: 0.25 MG/2 MLS BID IH
     Route: 055
     Dates: start: 20050101
  2. XOPENEX [Concomitant]

REACTIONS (5)
  - ASTHENIA [None]
  - BLOOD GLUCOSE INCREASED [None]
  - DIABETES MELLITUS [None]
  - LETHARGY [None]
  - PHARMACEUTICAL PRODUCT COMPLAINT [None]
